FAERS Safety Report 5730148-0 (Version None)
Quarter: 2008Q2

REPORT INFORMATION
  Report Type: 
  Country: None (occurrence: None)
  Receive Date: 20080505
  Receipt Date: 20080505
  Transmission Date: 20081010
  Serious: Yes (Other)
  Sender: FDA-Public Use
  Company Number: None

PATIENT
  Age: 42 Year
  Sex: Female
  Weight: 74.8435 kg

DRUGS (1)
  1. DOXEPIN HCL [Suspect]
     Indication: URTICARIA
     Dosage: 25MG

REACTIONS (5)
  - ABDOMINAL PAIN UPPER [None]
  - ERYTHEMA [None]
  - FACIAL PAIN [None]
  - MOVEMENT DISORDER [None]
  - SWELLING FACE [None]
